FAERS Safety Report 6283655-9 (Version None)
Quarter: 2009Q3

REPORT INFORMATION
  Report Type: 
  Country: None (occurrence: None)
  Receive Date: 20090724
  Receipt Date: 20090717
  Transmission Date: 20100115
  Serious: Yes (Other)
  Sender: FDA-Public Use
  Company Number: PHEH2009US07816

PATIENT
  Sex: Female

DRUGS (3)
  1. EXELON [Suspect]
     Dosage: UNK
     Route: 062
     Dates: start: 20080101
  2. CATAPRES-TTS-1 [Concomitant]
  3. ANTIHYPERTENSIVES [Concomitant]

REACTIONS (5)
  - ASTHENIA [None]
  - BLOOD PRESSURE FLUCTUATION [None]
  - HEART RATE DECREASED [None]
  - HYPERHIDROSIS [None]
  - HYPERTENSION [None]
